FAERS Safety Report 15158528 (Version 7)
Quarter: 2021Q3

REPORT INFORMATION
  Report Type: Spontaneous
  Country: GB (occurrence: GB)
  Receive Date: 20180718
  Receipt Date: 20210903
  Transmission Date: 20211014
  Serious: Yes (Death, Hospitalization)
  Sender: FDA-Public Use
  Company Number: PHHY2016GB187021

PATIENT
  Age: 52 Year
  Sex: Female

DRUGS (49)
  1. XELODA [Suspect]
     Active Substance: CAPECITABINE
     Indication: BREAST CANCER
     Dosage: 3500 MG, Q3W
     Route: 048
     Dates: start: 20161122, end: 20161122
  2. TRASTUZUMAB EMTANSINE [Suspect]
     Active Substance: ADO-TRASTUZUMAB EMTANSINE
     Dosage: 260 MG, TIW
     Route: 042
     Dates: start: 20170426, end: 20170731
  3. DOXYCYCLINE. [Concomitant]
     Active Substance: DOXYCYCLINE
     Dosage: 100 MG
     Route: 048
     Dates: start: 20170107, end: 20170111
  4. SALBUTAMOL [Concomitant]
     Active Substance: ALBUTEROL
     Indication: DYSPNOEA
     Dosage: 2 PUFF, QD
     Route: 065
     Dates: start: 20170801
  5. METOCLOPRAMIDE. [Concomitant]
     Active Substance: METOCLOPRAMIDE
     Dosage: 10 MG
     Route: 048
     Dates: start: 20161122, end: 20170105
  6. METOCLOPRAMIDE. [Concomitant]
     Active Substance: METOCLOPRAMIDE
     Dosage: 10 MG
     Route: 048
     Dates: start: 20170201
  7. TRASTUZUMAB. [Suspect]
     Active Substance: TRASTUZUMAB
     Dosage: 672 MG, Q3W (END DATE: 26 OCT 2016)
     Route: 042
     Dates: start: 20160804, end: 20161026
  8. PERTUZUMAB. [Suspect]
     Active Substance: PERTUZUMAB
     Indication: HER2 POSITIVE BREAST CANCER
     Dosage: 840 MG, TIW (LOADING DOSE)
     Route: 042
     Dates: start: 20160301, end: 20160301
  9. DOXYCYCLINE. [Concomitant]
     Active Substance: DOXYCYCLINE
     Indication: PYREXIA
     Dosage: 100 MG
     Route: 048
     Dates: start: 20110107
  10. CITALOPRAM [Concomitant]
     Active Substance: CITALOPRAM HYDROBROMIDE
     Indication: VOMITING
     Dosage: 40 MG, QD
     Route: 048
  11. ENOXAPARIN [Concomitant]
     Active Substance: ENOXAPARIN
     Dosage: 40 MG, QD
     Route: 042
     Dates: start: 20170713, end: 20170718
  12. OMEPRAZOLE. [Concomitant]
     Active Substance: OMEPRAZOLE
     Indication: PRODUCT USED FOR UNKNOWN INDICATION
     Dosage: 20 MG, QD
     Route: 048
     Dates: start: 2008, end: 2018
  13. CAPECITABINE. [Suspect]
     Active Substance: CAPECITABINE
     Indication: HER2 POSITIVE BREAST CANCER
     Dosage: 3500 MG, Q3W
     Route: 048
     Dates: start: 20161122, end: 20161122
  14. HERCEPTIN [Suspect]
     Active Substance: TRASTUZUMAB
     Dosage: 672 MG, TIW MAINTENANCE DOSE
     Route: 042
     Dates: start: 20160324, end: 20160721
  15. ENOXAPARIN [Concomitant]
     Active Substance: ENOXAPARIN
     Indication: PRODUCT USED FOR UNKNOWN INDICATION
     Dosage: 40 MG, UNK
     Route: 058
     Dates: start: 20160802, end: 20160803
  16. ONDANSETRON [Concomitant]
     Active Substance: ONDANSETRON
     Dosage: 4 MG
     Route: 048
     Dates: start: 20170719, end: 20170726
  17. DOCETAXEL. [Suspect]
     Active Substance: DOCETAXEL
     Indication: HER2 POSITIVE BREAST CANCER
     Dosage: 160 MG, Q3W
     Route: 042
     Dates: start: 20160302, end: 20160505
  18. TRASTUZUMAB EMTANSINE [Suspect]
     Active Substance: ADO-TRASTUZUMAB EMTANSINE
     Dosage: 400 MG, TIW
     Route: 042
     Dates: start: 20170201, end: 20170222
  19. TRASTUZUMAB EMTANSINE [Suspect]
     Active Substance: ADO-TRASTUZUMAB EMTANSINE
     Dosage: 320 MG, TIW
     Route: 042
     Dates: start: 20170315, end: 20170405
  20. PERTUZUMAB. [Suspect]
     Active Substance: PERTUZUMAB
     Dosage: 420 MG, Q3W (LOADING DOSE)
     Route: 042
     Dates: start: 20160324, end: 20160721
  21. PERTUZUMAB. [Suspect]
     Active Substance: PERTUZUMAB
     Dosage: 840 UNK (LOADING DOSE)
     Route: 065
  22. CITALOPRAM [Concomitant]
     Active Substance: CITALOPRAM HYDROBROMIDE
     Dosage: 50 MG, PRN
     Route: 042
     Dates: start: 20170713, end: 20170714
  23. CYCLIZINE [Concomitant]
     Active Substance: CYCLIZINE
     Indication: VOMITING
     Dosage: 50 MG
     Route: 042
     Dates: start: 20170713, end: 20170714
  24. DOXYCYCLIN [Concomitant]
     Active Substance: DOXYCYCLINE
     Indication: PYREXIA
     Dosage: 100 MG
     Route: 048
     Dates: start: 20170107, end: 20170111
  25. ONDANSETRON [Concomitant]
     Active Substance: ONDANSETRON
     Indication: MIGRAINE
     Dosage: 16 MG, QD
     Route: 048
     Dates: start: 20170713, end: 20170719
  26. ORAMORPH [Concomitant]
     Active Substance: MORPHINE SULFATE
     Dosage: 10 MG
     Route: 048
     Dates: start: 20170801
  27. GABAPENTIN. [Concomitant]
     Active Substance: GABAPENTIN
     Indication: PRODUCT USED FOR UNKNOWN INDICATION
     Dosage: 900 MG, QD (300MG/ 0.33 DAY)
     Route: 048
     Dates: start: 20170801
  28. DOCETAXEL. [Suspect]
     Active Substance: DOCETAXEL
     Dosage: 120 MG, Q3W (END DATE: 16 JUN 2016)
     Route: 042
     Dates: start: 20160526
  29. TRASTUZUMAB EMTANSINE [Suspect]
     Active Substance: ADO-TRASTUZUMAB EMTANSINE
     Indication: HER2 POSITIVE BREAST CANCER
     Dosage: 400 MG, Q3W
     Route: 042
     Dates: start: 20170112
  30. FENTANYL. [Concomitant]
     Active Substance: FENTANYL
     Indication: PAIN
     Dosage: 25 MG, Q72H
     Route: 062
     Dates: start: 20170801
  31. GABAPENTIN. [Concomitant]
     Active Substance: GABAPENTIN
     Dosage: 300 MG
     Route: 048
     Dates: start: 20170801
  32. DIHYDROCODEINE [Concomitant]
     Active Substance: DIHYDROCODEINE
     Indication: MIGRAINE
     Dosage: 30 MG
     Route: 048
     Dates: start: 20170714, end: 2018
  33. IBUPROFEN. [Concomitant]
     Active Substance: IBUPROFEN
     Indication: BACK PAIN
     Dosage: 1200 MG, QD (400MG/0.33 DAY)
     Route: 048
     Dates: start: 20180320, end: 2018
  34. FULVESTRANT. [Suspect]
     Active Substance: FULVESTRANT
     Indication: HER2 POSITIVE BREAST CANCER
     Dosage: 500 MG, Q4W (END DATE: 02 NOV 2016)
     Route: 030
     Dates: start: 20160721, end: 20161102
  35. TRASTUZUMAB. [Suspect]
     Active Substance: TRASTUZUMAB
     Dosage: 672 MG, Q3W (MAINTENANCE DOSE (INFUSION, SOLUTION))
     Route: 042
     Dates: start: 20160324, end: 20160721
  36. PERTUZUMAB. [Suspect]
     Active Substance: PERTUZUMAB
     Dosage: 420 MG, Q3W
     Route: 042
     Dates: start: 20160804, end: 20161026
  37. HERCEPTIN [Suspect]
     Active Substance: TRASTUZUMAB
     Indication: HER2 POSITIVE BREAST CANCER
     Dosage: 903 MG, LOADING DOSE
     Route: 042
     Dates: start: 20160301, end: 20210301
  38. HERCEPTIN [Suspect]
     Active Substance: TRASTUZUMAB
     Dosage: 672 MG, Q3W
     Route: 042
     Dates: start: 20160804, end: 20161026
  39. SEPTRIN [Concomitant]
     Active Substance: SULFAMETHOXAZOLE\TRIMETHOPRIM
     Indication: PRODUCT USED FOR UNKNOWN INDICATION
     Dosage: 480 MG, QD
     Route: 048
     Dates: start: 20170409, end: 2018
  40. TRASTUZUMAB. [Suspect]
     Active Substance: TRASTUZUMAB
     Indication: HER2 POSITIVE BREAST CANCER
     Dosage: 903 MG (LOADING DOSE (INFUSION, SOLUTION))
     Route: 042
     Dates: start: 20160301, end: 20160301
  41. NERATINIB [Suspect]
     Active Substance: NERATINIB
     Indication: BREAST CANCER METASTATIC
     Dosage: 240 MG, Q3W
     Route: 048
     Dates: start: 20161122, end: 20161122
  42. NERATINIB [Suspect]
     Active Substance: NERATINIB
     Dosage: 160 MG, TIW
     Route: 048
     Dates: start: 20161222, end: 20170105
  43. ENOXAPARIN [Concomitant]
     Active Substance: ENOXAPARIN
     Dosage: 40 MG
     Route: 058
     Dates: start: 20161209, end: 20161212
  44. FOSTAIR [Concomitant]
     Active Substance: BECLOMETHASONE\FORMOTEROL
     Indication: PRODUCT USED FOR UNKNOWN INDICATION
     Dosage: UNK, PRN
     Route: 065
  45. ONDANSETRON [Concomitant]
     Active Substance: ONDANSETRON
     Dosage: 8 MG
     Route: 048
     Dates: start: 20170713, end: 20170719
  46. ONDANSETRON [Concomitant]
     Active Substance: ONDANSETRON
     Dosage: 8 MG, QD
     Route: 048
     Dates: start: 20170719, end: 20170726
  47. ORAMORPH [Concomitant]
     Active Substance: MORPHINE SULFATE
     Indication: MIGRAINE
     Dosage: 5 MG
     Route: 048
     Dates: start: 20170713, end: 20170719
  48. METOCLOPRAMIDE. [Concomitant]
     Active Substance: METOCLOPRAMIDE
     Indication: PRODUCT USED FOR UNKNOWN INDICATION
     Dosage: 10 MG
     Route: 048
     Dates: start: 20160301, end: 20160616
  49. DEXAMETHASONE. [Concomitant]
     Active Substance: DEXAMETHASONE
     Indication: PRODUCT USED FOR UNKNOWN INDICATION
     Dosage: 8 MG
     Route: 048
     Dates: start: 20160301, end: 20160616

REACTIONS (8)
  - Cellulitis [Recovered/Resolved]
  - Lower respiratory tract infection [Recovered/Resolved]
  - Urinary tract infection [Recovering/Resolving]
  - Cough [Recovered/Resolved]
  - Streptococcus test positive [Recovered/Resolved]
  - Fatigue [Not Recovered/Not Resolved]
  - Diarrhoea [Recovered/Resolved]
  - Disease progression [Fatal]

NARRATIVE: CASE EVENT DATE: 201606
